FAERS Safety Report 6779461-9 (Version None)
Quarter: 2010Q2

REPORT INFORMATION
  Report Type: 
  Country: None (occurrence: None)
  Receive Date: 20100618
  Receipt Date: 20100615
  Transmission Date: 20101027
  Serious: Yes (Other)
  Sender: FDA-Public Use
  Company Number: SE-PFIZER INC-2010066800

PATIENT
  Age: 37 Year
  Sex: Female
  Weight: 55 kg

DRUGS (6)
  1. SYNAREL [Suspect]
     Indication: ENDOMETRIOSIS
     Dosage: 200 MG, 2X/DAY
     Dates: start: 20100516
  2. SERTRALINE HYDROCHLORIDE [Concomitant]
     Dosage: 50 MG, 1X/DAY
     Dates: start: 20090901
  3. SOBRIL [Concomitant]
     Dosage: 10 MG, 1X/DAY
     Dates: start: 20090901
  4. IPREN [Concomitant]
     Dosage: 400 MG, AS NEEDED
     Dates: start: 20000101
  5. PULMICORT [Concomitant]
     Dosage: 400 UG, 2X/DAY
     Dates: start: 20000101
  6. CETIRIZINE [Concomitant]
     Dosage: 10 MG, 1X/DAY
     Dates: start: 20100501

REACTIONS (1)
  - DEPRESSION [None]
